FAERS Safety Report 19043911 (Version 1)
Quarter: 2021Q1

REPORT INFORMATION
  Report Type: Spontaneous
  Country: US (occurrence: US)
  Receive Date: 20210323
  Receipt Date: 20210323
  Transmission Date: 20210420
  Serious: Yes (Death, Life-Threatening, Hospitalization)
  Sender: FDA-Public Use
  Company Number: US-BAYER-2021-110403

PATIENT
  Age: 89 Year
  Sex: Female
  Weight: 99 kg

DRUGS (4)
  1. ASPIRIN (CARDIO) [Suspect]
     Active Substance: ASPIRIN
     Dosage: UNK
     Route: 065
  2. XARELTO [Suspect]
     Active Substance: RIVAROXABAN
     Indication: ATRIAL FIBRILLATION
     Dosage: 15 MG, UNK
     Route: 048
     Dates: start: 20210306
  3. XARELTO [Suspect]
     Active Substance: RIVAROXABAN
     Indication: CEREBROVASCULAR ACCIDENT PROPHYLAXIS
  4. LOVENOX [Concomitant]
     Active Substance: ENOXAPARIN SODIUM
     Dosage: UNK
     Dates: start: 20210306

REACTIONS (3)
  - Contraindicated product administered [Unknown]
  - Off label use [Unknown]
  - Renal haemorrhage [Fatal]

NARRATIVE: CASE EVENT DATE: 20210307
